FAERS Safety Report 4391976-X (Version None)
Quarter: 2004Q3

REPORT INFORMATION
  Report Type: 
  Country: None (occurrence: None)
  Receive Date: 20040701
  Receipt Date: 20040616
  Transmission Date: 20050211
  Serious: Yes (Hospitalization)
  Sender: FDA-Public Use
  Company Number: USA040670328

PATIENT
  Age: 54 Year
  Sex: Male
  Weight: 105 kg

DRUGS (3)
  1. HUMALOG [Suspect]
     Indication: DIABETES MELLITUS
     Dosage: 28 U/3 DAY
     Dates: start: 19990101
  2. LANTUS [Concomitant]
  3. ACTOS [Concomitant]

REACTIONS (5)
  - BLOOD GLUCOSE INCREASED [None]
  - GALLBLADDER DISORDER [None]
  - MEDICATION ERROR [None]
  - PANCREATITIS [None]
  - PHARMACEUTICAL PRODUCT COMPLAINT [None]
